FAERS Safety Report 17109502 (Version 1)
Quarter: 2019Q4

REPORT INFORMATION
  Report Type: Spontaneous
  Country: GB (occurrence: GB)
  Receive Date: 20191204
  Receipt Date: 20191204
  Transmission Date: 20200122
  Serious: Yes (Other)
  Sender: FDA-Public Use
  Company Number: GB-TEVA-2019-GB-1145765

PATIENT
  Age: 85 Year
  Sex: Male
  Weight: 73.02 kg

DRUGS (1)
  1. MEMANTINE. [Suspect]
     Active Substance: MEMANTINE
     Dosage: 20 MG
     Route: 048
     Dates: start: 20190801, end: 20190901

REACTIONS (2)
  - Blood urine present [Recovered/Resolved]
  - Urinary retention [Recovered/Resolved]
